FAERS Safety Report 5238754-7 (Version None)
Quarter: 2007Q1

REPORT INFORMATION
  Report Type: 
  Country: None (occurrence: None)
  Receive Date: 20070215
  Receipt Date: 20070205
  Transmission Date: 20070707
  Serious: Yes (Hospitalization, Other)
  Sender: FDA-Public Use
  Company Number: FR-ABBOTT-07P-056-0357178-00

PATIENT
  Age: 57 Year
  Sex: Male

DRUGS (7)
  1. SEVORANE LIQUID FOR INHALATION [Suspect]
     Indication: ANAESTHESIA
     Route: 055
     Dates: start: 20061030, end: 20061030
  2. PROPOFOL [Concomitant]
     Indication: ANAESTHESIA
     Route: 042
     Dates: start: 20061030, end: 20061030
  3. TIANEPTINE [Concomitant]
     Indication: DRUG USE FOR UNKNOWN INDICATION
     Dosage: LONG-TERM ESTABLISHED TREATMENT
  4. OXAZEPAM [Concomitant]
     Indication: DRUG USE FOR UNKNOWN INDICATION
     Dosage: LONG-TERM ESTABLISHED TREATMENT
  5. FOLIC ACID [Concomitant]
     Indication: DRUG USE FOR UNKNOWN INDICATION
     Dosage: LONG TERM ESTABLISHED TREATMENT
  6. MEPROBARNATC/ACEPROMETAZINE [Concomitant]
     Indication: DRUG USE FOR UNKNOWN INDICATION
     Dosage: LONG TERM ESTABLISHED TREATMENT
  7. OMEPRAZOLE [Concomitant]
     Indication: DRUG USE FOR UNKNOWN INDICATION
     Dosage: LONG TERM ESTABLISHED TREATMENT

REACTIONS (14)
  - ASCITES [None]
  - CONDITION AGGRAVATED [None]
  - ESCHERICHIA INFECTION [None]
  - GASTROINTESTINAL DISORDER [None]
  - HEPATIC FAILURE [None]
  - HEPATITIS CHOLESTATIC [None]
  - JAUNDICE [None]
  - MYCOPLASMA INFECTION [None]
  - OEDEMA [None]
  - PYREXIA [None]
  - SEPSIS [None]
  - SUBILEUS [None]
  - UNEVALUABLE EVENT [None]
  - VEIN DISORDER [None]
